FAERS Safety Report 10877382 (Version 1)
Quarter: 2015Q1

REPORT INFORMATION
  Report Type: Spontaneous
  Country: IT (occurrence: None)
  Receive Date: 20150224
  Receipt Date: 20150224
  Transmission Date: 20150721
  Serious: Yes (Hospitalization)
  Sender: FDA-Public Use
  Company Number: IT-H14001-15-00243

PATIENT
  Age: 79 Year
  Sex: Male

DRUGS (1)
  1. AMIODARONE (AMIODARONE) (UNKNOWN) [Suspect]
     Active Substance: AMIODARONE
     Indication: ATRIAL FIBRILLATION
     Dosage: 800 MG (200 MG,FOUR TIMES DAILY FOR 5 DAYS WEEKLY)

REACTIONS (1)
  - Organising pneumonia [None]
